FAERS Safety Report 9537417 (Version 4)
Quarter: 2013Q4

REPORT INFORMATION
  Report Type: Spontaneous
  Country: US (occurrence: US)
  Receive Date: 20130919
  Receipt Date: 20131212
  Transmission Date: 20140711
  Serious: Yes (Other)
  Sender: FDA-Public Use
  Company Number: US-TEVA-380204USA

PATIENT
  Age: 38 Year
  Sex: Female
  Weight: 85.81 kg

DRUGS (4)
  1. PARAGARD 380A [Suspect]
     Indication: CONTRACEPTION
     Route: 015
     Dates: start: 20120615, end: 20120808
  2. PARAGARD 380A [Suspect]
     Route: 015
     Dates: start: 20120808, end: 20130104
  3. IBUPROFEN [Concomitant]
     Dosage: Q 6 HRS PRN
  4. MULTIVITAMIN [Concomitant]

REACTIONS (4)
  - Device dislocation [Recovered/Resolved]
  - Pregnancy with contraceptive device [Unknown]
  - Drug ineffective [Unknown]
  - Hypomenorrhoea [Unknown]
